FAERS Safety Report 8304829-9 (Version None)
Quarter: 2012Q2

REPORT INFORMATION
  Report Type: 
  Country: None (occurrence: None)
  Receive Date: 20120423
  Receipt Date: 20120417
  Transmission Date: 20120825
  Serious: Yes (Other)
  Sender: FDA-Public Use
  Company Number: US-PFIZER INC-2012077546

PATIENT
  Sex: Male
  Weight: 52.608 kg

DRUGS (6)
  1. LIPITOR [Suspect]
     Dosage: 20 MG, 1X/DAY
     Route: 048
  2. LIPITOR [Suspect]
     Indication: HYPERLIPIDAEMIA
     Dosage: 10 MG, 1X/DAY
     Route: 048
  3. LEXAPRO [Concomitant]
     Indication: ANXIETY
     Dosage: UNK
     Dates: start: 20080601, end: 20090101
  4. NIASPAN [Concomitant]
     Indication: HYPERLIPIDAEMIA
     Dosage: UNK
     Dates: start: 20080701
  5. NEXIUM [Concomitant]
     Indication: GASTROOESOPHAGEAL REFLUX DISEASE
     Dosage: UNK
     Dates: start: 20120216
  6. LEXAPRO [Concomitant]
     Indication: DEPRESSION

REACTIONS (1)
  - MACULAR DEGENERATION [None]
